FAERS Safety Report 25222618 (Version 3)
Quarter: 2025Q2

REPORT INFORMATION
  Report Type: Spontaneous
  Country: FR (occurrence: FR)
  Receive Date: 20250421
  Receipt Date: 20250501
  Transmission Date: 20250716
  Serious: Yes (Other)
  Sender: GILEAD
  Company Number: None

PATIENT
  Age: 48 Year
  Sex: Female

DRUGS (1)
  1. SACITUZUMAB GOVITECAN-HZIY [Suspect]
     Active Substance: SACITUZUMAB GOVITECAN-HZIY
     Indication: Triple negative breast cancer
     Route: 042
     Dates: start: 20220707

REACTIONS (5)
  - Anal fissure [Recovering/Resolving]
  - Asthenia [Recovering/Resolving]
  - Nausea [Recovering/Resolving]
  - Pain [Recovering/Resolving]
  - Diarrhoea [Recovering/Resolving]

NARRATIVE: CASE EVENT DATE: 20220710
